FAERS Safety Report 5835352-9 (Version None)
Quarter: 2008Q3

REPORT INFORMATION
  Report Type: 
  Country: None (occurrence: None)
  Receive Date: 20080806
  Receipt Date: 20080729
  Transmission Date: 20090109
  Serious: Yes (Other)
  Sender: FDA-Public Use
  Company Number: US-WATSON-2008-03980

PATIENT
  Sex: Female
  Weight: 54.422 kg

DRUGS (6)
  1. DILTIA XT (WATSON LABORATORIES) [Suspect]
     Indication: BLOOD PRESSURE
     Dosage: 120 MG, DAILY
     Route: 048
     Dates: end: 20080722
  2. DILTIA XT (WATSON LABORATORIES) [Suspect]
     Dosage: 120 MG, DAILY
     Route: 048
     Dates: start: 20080601, end: 20080609
  3. CLONIDINE (WATSON LABORATORIES) [Suspect]
     Indication: BLOOD PRESSURE
     Dosage: 0.1 MG, DAILY
     Route: 048
     Dates: end: 20080722
  4. DILTIAZEM [Suspect]
     Indication: BLOOD PRESSURE
     Dosage: 180 MG, DAILY
     Route: 048
     Dates: start: 20080610
  5. NORVASC [Concomitant]
     Indication: BLOOD PRESSURE
     Dosage: 5 MG, DAILY
     Route: 048
     Dates: start: 20080722
  6. HYDROCHLOROTHIAZIDE [Concomitant]
     Indication: BLOOD PRESSURE
     Dosage: 12.5 MG, QAM
     Route: 048
     Dates: start: 20080722

REACTIONS (2)
  - BLOOD PRESSURE INCREASED [None]
  - DRUG INEFFECTIVE [None]
